FAERS Safety Report 9319203 (Version 1)
Quarter: 2013Q2

REPORT INFORMATION
  Report Type: Spontaneous
  Country: US (occurrence: US)
  Receive Date: 20130530
  Receipt Date: 20130530
  Transmission Date: 20140414
  Serious: Yes (Other)
  Sender: FDA-Public Use
  Company Number: US-PFIZER INC-2013164548

PATIENT
  Age: 46 Year
  Sex: Female
  Weight: 79.37 kg

DRUGS (6)
  1. LYRICA [Suspect]
     Indication: FIBROMYALGIA
     Dosage: 75 MG, 3X/DAY
     Route: 048
  2. LYRICA [Suspect]
     Dosage: 150 MG, 2X/DAY
     Route: 048
     Dates: start: 201305, end: 201305
  3. LYRICA [Suspect]
     Dosage: 75 MG, 3X/DAY
     Dates: start: 201305
  4. PERCOCET [Concomitant]
     Indication: MYOFASCIAL PAIN SYNDROME
     Dosage: 7.5 (OXYCODONE HYDROCHLORIDE)/325 (PARACETAMOL) MG, 2X/DAY
  5. OXYCONTIN [Concomitant]
     Indication: MYOFASCIAL PAIN SYNDROME
     Dosage: 15 MG, 2X/DAY
  6. LEVOXYL [Concomitant]
     Indication: HYPOTHYROIDISM
     Dosage: 200 UG, 1X/DAY

REACTIONS (7)
  - Weight increased [Unknown]
  - Drug intolerance [Unknown]
  - Oedema peripheral [Recovering/Resolving]
  - Myalgia [Recovering/Resolving]
  - Pre-existing condition improved [Unknown]
  - Therapeutic response unexpected [Unknown]
  - Pain [Unknown]
